FAERS Safety Report 7056611-0 (Version None)
Quarter: 2010Q4

REPORT INFORMATION
  Report Type: 
  Country: None (occurrence: None)
  Receive Date: 20101021
  Receipt Date: 20101012
  Transmission Date: 20110411
  Serious: Yes (Hospitalization)
  Sender: FDA-Public Use
  Company Number: CA-ABBOTT-10P-028-0660594-00

PATIENT
  Sex: Female
  Weight: 102.6 kg

DRUGS (6)
  1. HUMIRA [Suspect]
     Indication: CROHN'S DISEASE
     Route: 058
     Dates: start: 20100412
  2. DOXYCYCLINE [Concomitant]
     Indication: HIDRADENITIS
     Route: 048
     Dates: start: 20100501
  3. LITHIUM [Concomitant]
     Indication: BIPOLAR DISORDER
     Route: 048
     Dates: start: 20050101
  4. LITHIUM [Concomitant]
     Route: 048
     Dates: start: 20050101
  5. SEROQUEL [Concomitant]
     Indication: BIPOLAR DISORDER
     Route: 048
     Dates: start: 20050101
  6. LAMOTRIGINE [Concomitant]
     Indication: BIPOLAR DISORDER
     Route: 048
     Dates: start: 20050101

REACTIONS (3)
  - ABDOMINAL PAIN [None]
  - BIPOLAR DISORDER [None]
  - PYREXIA [None]
